FAERS Safety Report 16967041 (Version 2)
Quarter: 2019Q4

REPORT INFORMATION
  Report Type: Spontaneous
  Country: SK (occurrence: SK)
  Receive Date: 20191028
  Receipt Date: 20191118
  Transmission Date: 20200122
  Serious: Yes (Hospitalization)
  Sender: FDA-Public Use
  Company Number: SK-MYLANLABS-2019M1101094

PATIENT
  Age: 80 Year
  Sex: Female

DRUGS (6)
  1. PREDNISONE. [Suspect]
     Active Substance: PREDNISONE
     Dosage: 20 MILLIGRAM, QD
     Route: 065
  2. IRBESARTAN. [Concomitant]
     Active Substance: IRBESARTAN
     Indication: PRODUCT USED FOR UNKNOWN INDICATION
     Dosage: UNK
     Route: 065
  3. AMIODARONE [Concomitant]
     Active Substance: AMIODARONE
     Indication: PRODUCT USED FOR UNKNOWN INDICATION
     Dosage: UNK
     Route: 065
  4. PREDNISONE. [Suspect]
     Active Substance: PREDNISONE
     Indication: TOXIC SKIN ERUPTION
     Dosage: 30 MILLIGRAM, QD
     Route: 065
  5. AZATHIOPRINE. [Suspect]
     Active Substance: AZATHIOPRINE
     Indication: PRODUCT USED FOR UNKNOWN INDICATION
  6. PREDNISONE. [Suspect]
     Active Substance: PREDNISONE
     Dosage: 40 MILLIGRAM, QD
     Route: 065

REACTIONS (17)
  - Urinary tract infection [Unknown]
  - Rash [Unknown]
  - Dermatomyositis [Unknown]
  - Eyelid oedema [Unknown]
  - Toxic skin eruption [Unknown]
  - Erythema [Unknown]
  - Therapeutic response decreased [Unknown]
  - Face oedema [Unknown]
  - Muscular dystrophy [Unknown]
  - Sjogren^s syndrome [Unknown]
  - Dysstasia [Unknown]
  - Muscular weakness [Unknown]
  - Oedema peripheral [Unknown]
  - Myositis [Unknown]
  - Connective tissue disorder [Unknown]
  - Anaemia [Unknown]
  - Blood creatine phosphokinase increased [Unknown]
